FAERS Safety Report 11547907 (Version 1)
Quarter: 2015Q3

REPORT INFORMATION
  Report Type: Spontaneous
  Country: US (occurrence: US)
  Receive Date: 20150924
  Receipt Date: 20150924
  Transmission Date: 20151125
  Serious: No
  Sender: FDA-Public Use
  Company Number: US-AMNEAL PHARMACEUTICALS-2015AMN00056

PATIENT
  Age: 62 Year
  Sex: Female
  Weight: 59.86 kg

DRUGS (5)
  1. SYNTHROID [Concomitant]
     Active Substance: LEVOTHYROXINE SODIUM
     Dosage: UNK
     Dates: start: 1982
  2. LYRICA [Concomitant]
     Active Substance: PREGABALIN
     Indication: RHEUMATOID ARTHRITIS
  3. GABAPENTIN. [Suspect]
     Active Substance: GABAPENTIN
     Indication: RHEUMATOID ARTHRITIS
     Dosage: 1 CAPSULES, 1X/DAY
     Route: 048
     Dates: start: 20150301
  4. VERSED [Concomitant]
     Active Substance: MIDAZOLAM HYDROCHLORIDE
  5. VIVELLE DOT [Concomitant]
     Active Substance: ESTRADIOL
     Indication: HORMONE REPLACEMENT THERAPY
     Dosage: UNK
     Dates: start: 2001

REACTIONS (7)
  - Dizziness [Recovering/Resolving]
  - Disturbance in attention [Recovering/Resolving]
  - Malaise [Recovering/Resolving]
  - Vertigo [Recovering/Resolving]
  - Drug ineffective [Recovering/Resolving]
  - Feeling drunk [Recovering/Resolving]
  - Dysarthria [Recovering/Resolving]

NARRATIVE: CASE EVENT DATE: 20150301
